FAERS Safety Report 5140834-1 (Version None)
Quarter: 2006Q4

REPORT INFORMATION
  Report Type: 
  Country: None (occurrence: None)
  Receive Date: 20061031
  Receipt Date: 20060918
  Transmission Date: 20070319
  Serious: Yes (Hospitalization)
  Sender: FDA-Public Use
  Company Number: US-MERCK-0609USA03733

PATIENT
  Age: 80 Year
  Sex: Female

DRUGS (10)
  1. FOSAMAX [Suspect]
     Indication: OSTEOPOROSIS
     Route: 048
     Dates: start: 20030101
  2. TAMOXIFEN CITRATE [Concomitant]
     Route: 065
  3. TRAMADOL HCL [Concomitant]
     Route: 065
  4. NORVASC [Concomitant]
     Route: 065
  5. PRIMAXIN [Concomitant]
     Route: 065
  6. ENDOSOL EXTRA [Concomitant]
     Route: 065
  7. GLYBURIDE [Concomitant]
     Route: 065
  8. METFORMIN [Concomitant]
     Route: 065
  9. COZAAR [Concomitant]
     Route: 048
  10. OXYBUTYNIN CHLORIDE [Concomitant]
     Route: 065

REACTIONS (1)
  - CHEST PAIN [None]
